FAERS Safety Report 10313517 (Version 1)
Quarter: 2014Q3

REPORT INFORMATION
  Report Type: Spontaneous
  Country: US (occurrence: US)
  Receive Date: 20140718
  Receipt Date: 20140718
  Transmission Date: 20150326
  Serious: No
  Sender: FDA-Public Use
  Company Number: US-009507513-1407USA000994

PATIENT
  Age: 23 Year
  Sex: Male

DRUGS (1)
  1. PROVENTIL [Suspect]
     Active Substance: ALBUTEROL
     Indication: ASTHMA
     Dosage: 2 PUFF 4 TIMES DAILY AS NEEDED

REACTIONS (3)
  - Wrong technique in drug usage process [Unknown]
  - Dyspnoea [Unknown]
  - Product container issue [Unknown]
